FAERS Safety Report 10753677 (Version 1)
Quarter: 2015Q1

REPORT INFORMATION
  Report Type: Report from Study
  Country: ES (occurrence: ES)
  Receive Date: 20150201
  Receipt Date: 20150201
  Transmission Date: 20150721
  Serious: Yes (Other)
  Sender: FDA-Public Use
  Company Number: PHHY2015ES011189

PATIENT
  Age: 46 Year
  Sex: Female

DRUGS (1)
  1. EXTAVIA [Suspect]
     Active Substance: INTERFERON BETA-1B
     Indication: PRODUCT USED FOR UNKNOWN INDICATION
     Dosage: 1 ML, UNK
     Route: 058
     Dates: start: 201408

REACTIONS (4)
  - Hypotonia [Unknown]
  - Fatigue [Unknown]
  - Multiple sclerosis relapse [Unknown]
  - Asthenia [Unknown]
